FAERS Safety Report 12570222 (Version 1)
Quarter: 2016Q3

REPORT INFORMATION
  Report Type: Other
  Country: US (occurrence: US)
  Receive Date: 20160719
  Receipt Date: 20160719
  Transmission Date: 20161109
  Serious: Yes (Other)
  Sender: FDA-Public Use
  Company Number: US-B. BRAUN MEDICAL INC.-1055238

PATIENT
  Age: 60 Year
  Sex: Female

DRUGS (5)
  1. DEXTROSE. [Suspect]
     Active Substance: DEXTROSE
     Route: 013
  2. DEXTROSE. [Suspect]
     Active Substance: DEXTROSE
     Route: 042
  3. DEXTROSE INJECTIONS USP 0264-7510-00 0264-7510-20 [Suspect]
     Active Substance: DEXTROSE
     Indication: HYPOGLYCAEMIA
     Route: 042
  4. DEXTROSE. [Suspect]
     Active Substance: DEXTROSE
     Route: 042
  5. EPINEPHRINE. [Suspect]
     Active Substance: EPINEPHRINE
     Route: 042

REACTIONS (1)
  - Hypotension [None]
